FAERS Safety Report 8146121-1 (Version None)
Quarter: 2012Q1

REPORT INFORMATION
  Report Type: 
  Country: None (occurrence: None)
  Receive Date: 20120217
  Receipt Date: 20110405
  Transmission Date: 20120608
  Serious: No
  Sender: FDA-Public Use
  Company Number: US-ABBOTT-11P-163-0717006-00

PATIENT
  Sex: Female
  Weight: 90.8 kg

DRUGS (3)
  1. ASPIRIN [Concomitant]
     Indication: PROPHYLAXIS
     Route: 048
  2. SIMCOR [Suspect]
     Indication: BLOOD CHOLESTEROL INCREASED
     Dosage: 500/20 X 1 DAILY
     Route: 048
     Dates: start: 20110322
  3. ASPIRIN [Concomitant]
     Indication: FLUSHING

REACTIONS (3)
  - PRURITUS [None]
  - RASH [None]
  - SKIN TIGHTNESS [None]
